FAERS Safety Report 22657894 (Version 1)
Quarter: 2023Q2

REPORT INFORMATION
  Report Type: Spontaneous
  Country: CN (occurrence: None)
  Receive Date: 20230630
  Receipt Date: 20230630
  Transmission Date: 20230721
  Serious: Yes (Life-Threatening, Other)
  Sender: FDA-Public Use
  Company Number: 2023A149261

PATIENT
  Age: 18 Year
  Sex: Male
  Weight: 60 kg

DRUGS (3)
  1. SEROQUEL [Suspect]
     Active Substance: QUETIAPINE FUMARATE
     Indication: Suicide attempt
     Dosage: 20.0DF UNKNOWN
     Route: 048
     Dates: start: 20230607, end: 20230607
  2. FLUVOXAMINE MALEATE [Suspect]
     Active Substance: FLUVOXAMINE MALEATE
     Indication: Suicide attempt
     Dosage: 20.0DF UNKNOWN
     Route: 048
     Dates: start: 20230607, end: 20230607
  3. TANDOSPIRONE CITRATE [Suspect]
     Active Substance: TANDOSPIRONE CITRATE
     Indication: Suicide attempt
     Route: 048
     Dates: start: 20230607, end: 20230607

REACTIONS (2)
  - Somnolence [Unknown]
  - Intentional overdose [Unknown]

NARRATIVE: CASE EVENT DATE: 20230607
